FAERS Safety Report 9192140 (Version 1)
Quarter: 2013Q1

REPORT INFORMATION
  Report Type: Spontaneous
  Country: US (occurrence: None)
  Receive Date: 20130326
  Receipt Date: 20130326
  Transmission Date: 20140127
  Serious: Yes (Hospitalization)
  Sender: FDA-Public Use
  Company Number: None

PATIENT
  Age: 31 Year
  Sex: Male
  Weight: 72.6 kg

DRUGS (13)
  1. AZACITIDINE [Suspect]
     Indication: ACUTE MYELOID LEUKAEMIA
     Dosage: DAILYX5DAYS028DAY
     Route: 058
     Dates: start: 20121231, end: 20130301
  2. VALPROIC ACID [Suspect]
     Indication: ACUTE MYELOID LEUKAEMIA
     Dosage: QAM AND QPM
     Route: 048
     Dates: start: 20121231, end: 20130325
  3. BIOTENE [Concomitant]
  4. DIVALPROEX [Concomitant]
  5. FLUCONAZOLE [Concomitant]
  6. MULTIPLE VITAMIN [Concomitant]
  7. PRAMOXINE [Concomitant]
  8. PROCHLORPERAZINE [Concomitant]
  9. RANITIDINE [Concomitant]
  10. SULFAMETHOXAZLE WITH TRIMETHOPRIM [Concomitant]
  11. TRAMADOL [Concomitant]
  12. VALACYCLOVIR [Concomitant]
  13. WARFARIN [Concomitant]

REACTIONS (6)
  - Body temperature increased [None]
  - Diarrhoea [None]
  - Fatigue [None]
  - Decreased appetite [None]
  - Blood pressure decreased [None]
  - Viral upper respiratory tract infection [None]
